FAERS Safety Report 8928829 (Version 1)
Quarter: 2012Q4

REPORT INFORMATION
  Report Type: 
  Country: PT (occurrence: PT)
  Receive Date: 20121127
  Receipt Date: 20121127
  Transmission Date: 20130627
  Serious: Yes (Life-Threatening, Hospitalization)
  Sender: FDA-Public Use
  Company Number: PT-ABBOTT-12P-130-1007898-00

PATIENT
  Sex: Female

DRUGS (4)
  1. BRUFEN [Suspect]
     Indication: TOOTH EXTRACTION
     Route: 048
     Dates: start: 20110521, end: 20110521
  2. BRUFEN [Suspect]
     Indication: PAIN
  3. BRUFEN [Suspect]
     Indication: INFLAMMATION
  4. ROVAMYCINE [Concomitant]
     Indication: PRODUCT USED FOR UNKNOWN INDICATION
     Dates: start: 201105

REACTIONS (1)
  - Laryngeal oedema [Recovered/Resolved]
